FAERS Safety Report 7347153-3 (Version None)
Quarter: 2011Q1

REPORT INFORMATION
  Report Type: 
  Country: None (occurrence: None)
  Receive Date: 20110311
  Receipt Date: 20110307
  Transmission Date: 20110831
  Serious: Yes (Death)
  Sender: FDA-Public Use
  Company Number: US-PFIZER INC-2011049557

PATIENT
  Age: 26 Year
  Sex: Female

DRUGS (3)
  1. ALPRAZOLAM [Suspect]
  2. MEPROBAMATE [Suspect]
  3. HEROIN [Suspect]

REACTIONS (1)
  - TOXICITY TO VARIOUS AGENTS [None]
